FAERS Safety Report 11738260 (Version 2)
Quarter: 2015Q4

REPORT INFORMATION
  Report Type: Spontaneous
  Country: FR (occurrence: FR)
  Receive Date: 20151113
  Receipt Date: 20151124
  Transmission Date: 20160304
  Serious: Yes (Hospitalization)
  Sender: FDA-Public Use
  Company Number: FR-PFIZER INC-2015377248

PATIENT
  Age: 65 Year
  Sex: Male

DRUGS (18)
  1. FLUOROURACIL. [Suspect]
     Active Substance: FLUOROURACIL
     Dosage: 1ST COURSE
     Route: 042
     Dates: start: 20150730
  2. ISOPTINE [Concomitant]
     Active Substance: VERAPAMIL HYDROCHLORIDE
     Dosage: 40 MG, 1X/DAY
     Route: 048
     Dates: end: 20150929
  3. ELOXATIN [Suspect]
     Active Substance: OXALIPLATIN
     Dosage: 2ND COURSE
     Route: 042
     Dates: start: 20150813
  4. CALCIUM LEVOFOLINATE [Concomitant]
     Active Substance: LEVOLEUCOVORIN CALCIUM
     Dosage: 2ND COURSE
     Route: 042
     Dates: start: 20150813
  5. SELOKEN /00376902/ [Concomitant]
     Active Substance: METOPROLOL TARTRATE
     Dosage: UNK
     Route: 048
  6. SOLU-MEDROL [Concomitant]
     Active Substance: METHYLPREDNISOLONE SODIUM SUCCINATE
     Dosage: 2ND COURSE
     Route: 042
     Dates: start: 20150813
  7. FLUOROURACIL. [Suspect]
     Active Substance: FLUOROURACIL
     Dosage: 2ND COURSE
     Route: 042
     Dates: start: 20150813
  8. CAMPTO [Suspect]
     Active Substance: IRINOTECAN
     Dosage: 1ST COURSE
     Route: 042
     Dates: start: 20150730
  9. ZOPHREN /00955301/ [Concomitant]
     Active Substance: ONDANSETRON
     Dosage: 1ST COURSE
     Route: 042
     Dates: start: 20150730
  10. INEXIUM /01479302/ [Concomitant]
     Active Substance: ESOMEPRAZOLE MAGNESIUM
     Dosage: UNK
     Route: 048
  11. CAMPTO [Suspect]
     Active Substance: IRINOTECAN
     Dosage: 2ND COURSE
     Route: 042
     Dates: start: 20150813
  12. ZOPHREN /00955301/ [Concomitant]
     Active Substance: ONDANSETRON
     Dosage: 2ND COURSE
     Route: 042
     Dates: start: 20150813
  13. KARDEGIC [Concomitant]
     Active Substance: ASPIRIN LYSINE
     Dosage: 75 MG, 1X/DAY
     Route: 048
  14. ATROPINE. [Concomitant]
     Active Substance: ATROPINE
     Dosage: 1ST COURSE
     Route: 042
     Dates: start: 20150730
  15. ELOXATIN [Suspect]
     Active Substance: OXALIPLATIN
     Dosage: 1ST COURSE
     Route: 042
     Dates: start: 20150730
  16. CALCIUM LEVOFOLINATE [Concomitant]
     Active Substance: LEVOLEUCOVORIN CALCIUM
     Dosage: FIRST COURSE
     Route: 042
     Dates: start: 20150730
  17. SOLU-MEDROL [Concomitant]
     Active Substance: METHYLPREDNISOLONE SODIUM SUCCINATE
     Dosage: 1ST COURSE
     Route: 042
     Dates: start: 20150730
  18. ATROPINE. [Concomitant]
     Active Substance: ATROPINE
     Dosage: 2ND COURSE
     Route: 042
     Dates: start: 20150813

REACTIONS (2)
  - Chest pain [Recovered/Resolved]
  - Arteriospasm coronary [Recovered/Resolved]

NARRATIVE: CASE EVENT DATE: 20150815
